FAERS Safety Report 7007688-X (Version None)
Quarter: 2010Q3

REPORT INFORMATION
  Report Type: 
  Country: None (occurrence: None)
  Receive Date: 20100917
  Receipt Date: 20100913
  Transmission Date: 20110219
  Serious: Yes (Life-Threatening, Hospitalization, Disabling, Other)
  Sender: FDA-Public Use
  Company Number: 2010SP031857

PATIENT
  Age: 70 Year
  Sex: Male
  Weight: 94.3482 kg

DRUGS (15)
  1. TEMODAR [Suspect]
     Indication: GLIOBLASTOMA
     Dosage: 420 MG; PO
     Route: 048
     Dates: start: 20090605, end: 20100405
  2. INVESTIGATIONAL DRUG [Suspect]
     Indication: GLIOBLASTOMA
     Dosage: 0.6 MCG;QM;ID
     Dates: start: 20090429
  3. SARGRAMOSTIM [Suspect]
     Indication: GLIOBLASTOMA
     Dosage: 0.35 MCG;QM;ID
     Dates: start: 20090429
  4. ACYCLOVIR SODIUM [Suspect]
     Indication: URINARY TRACT INFECTION
     Dosage: 900 MG;QD;IV; 800 MG;QD;IV
     Route: 042
     Dates: start: 20100419, end: 20100421
  5. ACIPHEX [Concomitant]
  6. AVODART [Concomitant]
  7. DEXAMETHASONE [Concomitant]
  8. DEXAMETHASONE [Concomitant]
  9. ENALAPRIL MALEATE [Concomitant]
  10. TAMSULOSIN HYDROCHLORIDE [Concomitant]
  11. KEPPRA [Concomitant]
  12. PROZAC [Concomitant]
  13. VERAPAMIL [Concomitant]
  14. ZOFRAN [Concomitant]
  15. LAMOTRIGINE [Concomitant]

REACTIONS (13)
  - BLOOD POTASSIUM DECREASED [None]
  - BLOOD SODIUM DECREASED [None]
  - CARBON DIOXIDE DECREASED [None]
  - CLONUS [None]
  - HYDROCEPHALUS [None]
  - HYPERREFLEXIA [None]
  - HYPOTHYROIDISM [None]
  - MENINGITIS [None]
  - MUSCLE TWITCHING [None]
  - MUSCULOSKELETAL STIFFNESS [None]
  - RENAL FAILURE ACUTE [None]
  - UNRESPONSIVE TO STIMULI [None]
  - URINARY TRACT INFECTION [None]
